FAERS Safety Report 19658864 (Version 1)
Quarter: 2021Q3

REPORT INFORMATION
  Report Type: Spontaneous
  Country: GR (occurrence: GR)
  Receive Date: 20210805
  Receipt Date: 20210805
  Transmission Date: 20211014
  Serious: Yes (Hospitalization)
  Sender: FDA-Public Use
  Company Number: GR-TEVA-2021-GR-1938122

PATIENT
  Age: 75 Year
  Sex: Male

DRUGS (7)
  1. LEUCOVORIN CALCIUM. [Suspect]
     Active Substance: LEUCOVORIN CALCIUM
     Indication: ADENOCARCINOMA PANCREAS
     Dosage: TWO CYCLES OF A MFOLFOX REGIMEN
     Route: 065
  2. 5?FU [Suspect]
     Active Substance: FLUOROURACIL
     Dosage: ONE CYCLE OF FOLFIRINOX
     Route: 050
  3. 5?FU [Suspect]
     Active Substance: FLUOROURACIL
     Indication: ADENOCARCINOMA PANCREAS
     Dosage: TWO CYCLES OF A MFOLFOX REGIMEN, RECEIVED OVER 2 DAYS
     Route: 050
  4. IRINOTECAN [Suspect]
     Active Substance: IRINOTECAN
     Indication: ADENOCARCINOMA PANCREAS
     Dosage: ONE CYCLE OF FOLFIRINOX
     Route: 065
  5. OXALIPLATIN. [Suspect]
     Active Substance: OXALIPLATIN
     Indication: ADENOCARCINOMA PANCREAS
     Dosage: ONE CYCLE OF FOLFIRINOX
     Route: 065
  6. OXALIPLATIN. [Suspect]
     Active Substance: OXALIPLATIN
     Indication: ADENOCARCINOMA PANCREAS
     Dosage: TWO CYCLES OF A MFOLFOX REGIMEN
     Route: 065
  7. LEUCOVORIN CALCIUM. [Suspect]
     Active Substance: LEUCOVORIN CALCIUM
     Dosage: ONE CYCLE OF FOLFIRINOX
     Route: 065

REACTIONS (1)
  - Posterior reversible encephalopathy syndrome [Recovering/Resolving]
